FAERS Safety Report 12463969 (Version 1)
Quarter: 2016Q2

REPORT INFORMATION
  Report Type: Spontaneous
  Country: US (occurrence: None)
  Receive Date: 20160613
  Receipt Date: 20160613
  Transmission Date: 20160815
  Serious: Yes (Other)
  Sender: FDA-Public Use
  Company Number: None

PATIENT
  Age: 34 Year
  Sex: Female
  Weight: 102.06 kg

DRUGS (13)
  1. GLIPIZIDE. [Suspect]
     Active Substance: GLIPIZIDE
     Indication: DIABETES MELLITUS
  2. HYDROCODONE [Suspect]
     Active Substance: HYDROCODONE
  3. DIAZEPAM. [Suspect]
     Active Substance: DIAZEPAM
  4. GABAPENTIN. [Suspect]
     Active Substance: GABAPENTIN
  5. TOPIRAMATE. [Suspect]
     Active Substance: TOPIRAMATE
  6. TRAZODONE [Suspect]
     Active Substance: TRAZODONE HYDROCHLORIDE
  7. SENNA [Suspect]
     Active Substance: SENNA LEAF\SENNOSIDES\SENNOSIDES A AND B
  8. FLUOXETINE [Suspect]
     Active Substance: FLUOXETINE HYDROCHLORIDE
  9. CYCLOBENZAPRINE [Suspect]
     Active Substance: CYCLOBENZAPRINE
  10. METFORMIN [Suspect]
     Active Substance: METFORMIN HYDROCHLORIDE
  11. FAMOTIDINE. [Suspect]
     Active Substance: FAMOTIDINE
  12. IBUPROFEN. [Suspect]
     Active Substance: IBUPROFEN
  13. POLYETHYLYNE [Suspect]
     Active Substance: POLYETHYLENE GLYCOLS

REACTIONS (9)
  - Vision blurred [None]
  - Abdominal pain upper [None]
  - Dysarthria [None]
  - Dizziness [None]
  - Vomiting [None]
  - Confusional state [None]
  - Anger [None]
  - Nausea [None]
  - Agitation [None]

NARRATIVE: CASE EVENT DATE: 20160608
